FAERS Safety Report 7974435-4 (Version None)
Quarter: 2011Q4

REPORT INFORMATION
  Report Type: 
  Country: None (occurrence: None)
  Receive Date: 20111213
  Receipt Date: 20111130
  Transmission Date: 20120403
  Serious: Yes (Death, Hospitalization)
  Sender: FDA-Public Use
  Company Number: DE-CELGENEUS-062-50794-11120010

PATIENT
  Age: 74 Year
  Sex: Female
  Weight: 62.2 kg

DRUGS (1)
  1. VIDAZA [Suspect]
     Indication: MYELODYSPLASTIC SYNDROME
     Dosage: ABSOLUTE: 126.75
     Route: 041
     Dates: start: 20110614, end: 20110616

REACTIONS (1)
  - PNEUMONIA [None]
